FAERS Safety Report 9565360 (Version 2)
Quarter: 2013Q3

REPORT INFORMATION
  Report Type: Spontaneous
  Country: JP (occurrence: JP)
  Receive Date: 20130930
  Receipt Date: 20130930
  Transmission Date: 20140515
  Serious: No
  Sender: FDA-Public Use
  Company Number: JP-UCBSA-094883

PATIENT
  Age: 35 Year
  Sex: Female
  Weight: 49 kg

DRUGS (8)
  1. E KEPPRA [Suspect]
     Indication: JUVENILE MYOCLONIC EPILEPSY
     Route: 048
     Dates: start: 201201
  2. E KEPPRA [Suspect]
     Indication: IDIOPATHIC GENERALISED EPILEPSY
     Route: 048
     Dates: start: 201201
  3. E KEPPRA [Suspect]
     Indication: JUVENILE MYOCLONIC EPILEPSY
     Route: 048
  4. E KEPPRA [Suspect]
     Indication: IDIOPATHIC GENERALISED EPILEPSY
     Route: 048
  5. E KEPPRA [Suspect]
     Indication: JUVENILE MYOCLONIC EPILEPSY
     Route: 048
  6. E KEPPRA [Suspect]
     Indication: IDIOPATHIC GENERALISED EPILEPSY
     Route: 048
  7. FOLIAMIN [Concomitant]
     Dosage: DOSE: 5 MG
     Route: 048
  8. METRONIDAZOLE [Concomitant]

REACTIONS (2)
  - Gestational hypertension [Recovered/Resolved]
  - Pregnancy [Recovered/Resolved]
